FAERS Safety Report 6099536-X (Version None)
Quarter: 2009Q1

REPORT INFORMATION
  Report Type: 
  Country: None (occurrence: None)
  Receive Date: 20090226
  Receipt Date: 20090217
  Transmission Date: 20090719
  Serious: Yes (Hospitalization)
  Sender: FDA-Public Use
  Company Number: 2009SP004084

PATIENT
  Age: 71 Year
  Sex: Female

DRUGS (2)
  1. BETAMETHASONE SODIUM PHOSPHATE [Suspect]
     Indication: BRAIN NEOPLASM
     Dosage: 2 MG; QD; IV
     Route: 042
     Dates: start: 20081216, end: 20090125
  2. IRESSA [Suspect]
     Indication: DRUG USE FOR UNKNOWN INDICATION
     Dosage: 250 MG; QD; PO
     Route: 048
     Dates: start: 20090111, end: 20090123

REACTIONS (3)
  - HAEMOGLOBIN DECREASED [None]
  - OESOPHAGEAL ULCER [None]
  - PROCTITIS ULCERATIVE [None]
